FAERS Safety Report 5424874-0 (Version None)
Quarter: 2007Q3

REPORT INFORMATION
  Report Type: 
  Country: None (occurrence: None)
  Receive Date: 20070824
  Receipt Date: 20070820
  Transmission Date: 20080115
  Serious: Yes (Other)
  Sender: FDA-Public Use
  Company Number: US-BAYER-200711312BCC

PATIENT
  Age: 78 Year
  Sex: Female

DRUGS (11)
  1. ALEVE [Suspect]
     Indication: PAIN
     Route: 048
     Dates: start: 20070301
  2. WARFARIN SODIUM [Suspect]
  3. ALTACE [Concomitant]
  4. AMBIEN [Concomitant]
  5. CADUET [Concomitant]
  6. COREG [Concomitant]
  7. COZAAR [Concomitant]
  8. HYDROCHLOROTHIAZIDE [Concomitant]
  9. LEVOTHROID [Concomitant]
  10. MULTI-VITAMIN [Concomitant]
  11. POTASSIUM CHLORIDE [Concomitant]

REACTIONS (1)
  - PROTHROMBIN TIME PROLONGED [None]
